FAERS Safety Report 15450190 (Version 1)
Quarter: 2018Q3

REPORT INFORMATION
  Report Type: Spontaneous
  Country: US (occurrence: US)
  Receive Date: 20180926
  Receipt Date: 20180926
  Transmission Date: 20181010
  Serious: Yes (Hospitalization)
  Sender: FDA-Public Use
  Company Number: None

PATIENT
  Sex: Female

DRUGS (5)
  1. CARAFATE [Concomitant]
     Active Substance: SUCRALFATE
  2. HYOSCYAMINE. [Concomitant]
     Active Substance: HYOSCYAMINE
  3. OCTREOTIDE. [Suspect]
     Active Substance: OCTREOTIDE
     Indication: ENDOCRINE DISORDER
     Route: 058
     Dates: start: 20180323
  4. HYDROMORPHON [Concomitant]
     Active Substance: HYDROMORPHONE
  5. KEPARIN [Concomitant]

REACTIONS (1)
  - Therapy change [None]
